FAERS Safety Report 18528731 (Version 4)
Quarter: 2020Q4

REPORT INFORMATION
  Report Type: Report from Study
  Country: HU (occurrence: HU)
  Receive Date: 20201120
  Receipt Date: 20201229
  Transmission Date: 20210114
  Serious: Yes (Other)
  Sender: FDA-Public Use
  Company Number: HU-JNJFOC-20201118339

PATIENT
  Age: 58 Year
  Sex: Male
  Weight: 60 kg

DRUGS (1)
  1. STELARA [Suspect]
     Active Substance: USTEKINUMAB
     Indication: PSORIASIS
     Route: 058
     Dates: start: 20180827, end: 20200810

REACTIONS (6)
  - Epistaxis [Recovered/Resolved]
  - Epilepsy [Unknown]
  - Chest injury [Recovered/Resolved]
  - Cerebral atrophy [Unknown]
  - Subarachnoid haemorrhage [Unknown]
  - Head injury [Recovered/Resolved]

NARRATIVE: CASE EVENT DATE: 20201101
